FAERS Safety Report 21919289 (Version 1)
Quarter: 2023Q1

REPORT INFORMATION
  Report Type: Spontaneous
  Country: US (occurrence: US)
  Receive Date: 20230127
  Receipt Date: 20230127
  Transmission Date: 20230417
  Serious: Yes (Death)
  Sender: FDA-Public Use
  Company Number: US-PERRIGO-23US001336

PATIENT
  Age: 15 Year
  Sex: Female

DRUGS (11)
  1. LORATADINE [Suspect]
     Active Substance: LORATADINE
     Indication: Suspected suicide
     Dosage: UNK
     Route: 048
  2. BUPROPION [Suspect]
     Active Substance: BUPROPION
     Indication: Suspected suicide
     Dosage: UNK
     Route: 048
  3. IRON [Suspect]
     Active Substance: IRON
     Indication: Suspected suicide
     Dosage: UNK
     Route: 048
  4. CYCLOBENZAPRINE [Suspect]
     Active Substance: CYCLOBENZAPRINE
     Indication: Suspected suicide
     Dosage: UNK
     Route: 048
  5. SERTRALINE [Suspect]
     Active Substance: SERTRALINE HYDROCHLORIDE
     Indication: Suspected suicide
     Dosage: UNK
     Route: 048
  6. FLUOXETINE [Suspect]
     Active Substance: FLUOXETINE HYDROCHLORIDE
     Indication: Suspected suicide
     Dosage: UNK
     Route: 048
  7. TRAZODONE [Suspect]
     Active Substance: TRAZODONE HYDROCHLORIDE
     Indication: Suspected suicide
     Dosage: UNK
     Route: 048
  8. SPIRONOLACTONE [Suspect]
     Active Substance: SPIRONOLACTONE
     Indication: Suspected suicide
     Dosage: UNK
     Route: 048
  9. ARIPIPRAZOLE [Suspect]
     Active Substance: ARIPIPRAZOLE
     Indication: Suspected suicide
     Dosage: UNK
     Route: 048
  10. MELATONIN [Suspect]
     Active Substance: MELATONIN
     Indication: Suspected suicide
     Dosage: UNK
     Route: 048
  11. VITAMIN D NOS [Suspect]
     Active Substance: VITAMIN D NOS
     Indication: Suspected suicide
     Dosage: UNK
     Route: 048

REACTIONS (1)
  - Exposure to toxic agent [Fatal]

NARRATIVE: CASE EVENT DATE: 20210101
